FAERS Safety Report 20952308 (Version 6)
Quarter: 2022Q4

REPORT INFORMATION
  Report Type: Spontaneous
  Country: US (occurrence: US)
  Receive Date: 20220613
  Receipt Date: 20221117
  Transmission Date: 20230113
  Serious: Yes (Other)
  Sender: FDA-Public Use
  Company Number: US-PFIZER INC-202200824689

PATIENT
  Age: 56 Year
  Sex: Female

DRUGS (4)
  1. INLYTA [Suspect]
     Active Substance: AXITINIB
     Dosage: 2 MG, 2X/DAY
  2. INLYTA [Suspect]
     Active Substance: AXITINIB
     Dosage: 3 MG
  3. OPDIVO [Suspect]
     Active Substance: NIVOLUMAB
     Dosage: UNK
  4. YERVOY [Suspect]
     Active Substance: IPILIMUMAB
     Dosage: UNK

REACTIONS (8)
  - Pulmonary thrombosis [Unknown]
  - COVID-19 [Unknown]
  - Bone disorder [Unknown]
  - Blood test abnormal [Unknown]
  - Pain in extremity [Unknown]
  - Blister [Unknown]
  - Gait disturbance [Unknown]
  - Visual impairment [Unknown]

NARRATIVE: CASE EVENT DATE: 20200101
